FAERS Safety Report 14143353 (Version 1)
Quarter: 2017Q4

REPORT INFORMATION
  Report Type: Spontaneous
  Country: US (occurrence: US)
  Receive Date: 20171030
  Receipt Date: 20171030
  Transmission Date: 20180321
  Serious: No
  Sender: FDA-Public Use
  Company Number: US-SUNOVION-2017SUN004652

PATIENT

DRUGS (1)
  1. LATUDA [Suspect]
     Active Substance: LURASIDONE HYDROCHLORIDE
     Dosage: UNK
     Route: 048
     Dates: start: 20171004, end: 20171021

REACTIONS (7)
  - Mood altered [Unknown]
  - Increased appetite [Unknown]
  - Daydreaming [Unknown]
  - Nightmare [Unknown]
  - Fatigue [Unknown]
  - Somnolence [Unknown]
  - Weight increased [Unknown]
